FAERS Safety Report 6144889-7 (Version None)
Quarter: 2009Q2

REPORT INFORMATION
  Report Type: 
  Country: None (occurrence: None)
  Receive Date: 20090402
  Receipt Date: 20090402
  Transmission Date: 20091009
  Serious: Yes (Other)
  Sender: FDA-Public Use
  Company Number: None

PATIENT
  Age: 37 Year
  Sex: Female
  Weight: 70.3075 kg

DRUGS (1)
  1. LEVAQUIN [Suspect]
     Indication: BRONCHITIS
     Dosage: 1 TABLET BY MOUTH EVERY DAY PO
     Route: 048
     Dates: start: 20090310, end: 20090316

REACTIONS (22)
  - ABNORMAL BEHAVIOUR [None]
  - AMNESIA [None]
  - ANXIETY [None]
  - ARTHRALGIA [None]
  - BURNING SENSATION [None]
  - CHILLS [None]
  - COUGH [None]
  - DIARRHOEA [None]
  - FAECES DISCOLOURED [None]
  - FEELING OF BODY TEMPERATURE CHANGE [None]
  - HALLUCINATION [None]
  - HYPERHIDROSIS [None]
  - INSOMNIA [None]
  - MUSCULAR WEAKNESS [None]
  - MUSCULOSKELETAL PAIN [None]
  - MYALGIA [None]
  - PAIN IN EXTREMITY [None]
  - RESTLESSNESS [None]
  - SPEECH DISORDER [None]
  - SUDDEN ONSET OF SLEEP [None]
  - SUICIDAL IDEATION [None]
  - TENDON PAIN [None]
